FAERS Safety Report 4475836-1 (Version None)
Quarter: 2004Q3

REPORT INFORMATION
  Report Type: 
  Country: None (occurrence: None)
  Receive Date: 20040923
  Receipt Date: 20040709
  Transmission Date: 20050211
  Serious: No
  Sender: FDA-Public Use
  Company Number: USA040772197

PATIENT
  Age: 65 Year
  Sex: Male
  Weight: 76 kg

DRUGS (11)
  1. FORTEO [Suspect]
     Indication: OSTEOPOROSIS
     Dosage: 20 UG/1 DAY
     Dates: start: 20031201
  2. DESYREL [Concomitant]
  3. HUMIBID (GUAIFENESIN) [Concomitant]
  4. VERAPAMIL [Concomitant]
  5. NEURONTIN [Concomitant]
  6. XANAX (ALPRAZOLAM DUM) [Concomitant]
  7. VICODIN [Concomitant]
  8. NULEV (HYOSCYAMINE SULFATE) [Concomitant]
  9. DARVOCET-N 100 [Concomitant]
  10. MEMANTINE HCL [Concomitant]
  11. RIVASTIGMINE [Concomitant]

REACTIONS (8)
  - ARTHRALGIA [None]
  - BACK PAIN [None]
  - BONE PAIN [None]
  - FOOT FRACTURE [None]
  - HEADACHE [None]
  - INJECTION SITE HAEMORRHAGE [None]
  - JOINT CONTRACTURE [None]
  - PAIN IN EXTREMITY [None]
